FAERS Safety Report 23386562 (Version 3)
Quarter: 2024Q1

REPORT INFORMATION
  Report Type: Spontaneous
  Country: US (occurrence: US)
  Receive Date: 20240110
  Receipt Date: 20240312
  Transmission Date: 20240410
  Serious: No
  Sender: FDA-Public Use
  Company Number: US-SA-SAC20240108001095

PATIENT
  Age: 81 Year
  Sex: Male

DRUGS (2)
  1. DUPIXENT [Suspect]
     Active Substance: DUPILUMAB
     Indication: Dermatitis atopic
     Dosage: 300 MG, QOW
     Route: 058
     Dates: start: 202312
  2. MORPHINE [Suspect]
     Active Substance: MORPHINE
     Dosage: UNK UNK, PRN

REACTIONS (6)
  - Eye pain [Unknown]
  - Eye disorder [Unknown]
  - Feeling abnormal [Unknown]
  - Vision blurred [Unknown]
  - Dry eye [Unknown]
  - Surgery [Unknown]
